FAERS Safety Report 6691505-1 (Version None)
Quarter: 2010Q2

REPORT INFORMATION
  Report Type: 
  Country: None (occurrence: None)
  Receive Date: 20100414
  Receipt Date: 20090324
  Transmission Date: 20101027
  Serious: Yes (Other)
  Sender: FDA-Public Use
  Company Number: 09-114

PATIENT
  Age: 81 Year
  Sex: Female

DRUGS (3)
  1. ALEVE [Suspect]
     Indication: PAIN IN EXTREMITY
     Dosage: 440 MG, ONCE, ORAL; 220 MG, ONCE, ORAL
     Route: 048
     Dates: start: 20090308
  2. ALEVE [Suspect]
     Indication: PAIN IN EXTREMITY
     Dosage: 440 MG, ONCE, ORAL; 220 MG, ONCE, ORAL
     Route: 048
     Dates: start: 20090309
  3. CELEBREX [Concomitant]

REACTIONS (1)
  - DRUG INEFFECTIVE [None]
